FAERS Safety Report 7200523-6 (Version None)
Quarter: 2010Q4

REPORT INFORMATION
  Report Type: 
  Country: None (occurrence: None)
  Receive Date: 20101215
  Receipt Date: 20101130
  Transmission Date: 20110411
  Serious: Yes (Hospitalization, Other)
  Sender: FDA-Public Use
  Company Number: DSJ-2010-17991

PATIENT
  Age: 63 Year
  Sex: Female

DRUGS (3)
  1. BENICAR [Suspect]
     Indication: HYPERTENSION
     Dosage: 20 MG (20 MG, 1 IN 1 D), PER ORAL
     Route: 048
     Dates: start: 20071019
  2. LETROZOLE [Concomitant]
  3. TAMOXIFEN [Concomitant]

REACTIONS (1)
  - BREAST NEOPLASM [None]
